FAERS Safety Report 10812029 (Version 1)
Quarter: 2015Q1

REPORT INFORMATION
  Report Type: Spontaneous
  Country: US (occurrence: None)
  Receive Date: 20150213
  Receipt Date: 20150213
  Transmission Date: 20150721
  Serious: Yes (Life-Threatening, Hospitalization, Disabling)
  Sender: FDA-Public Use
  Company Number: None

PATIENT
  Age: 74 Year
  Sex: Female
  Weight: 49.8 kg

DRUGS (21)
  1. ADVAIR HFA [Concomitant]
     Active Substance: FLUTICASONE PROPIONATE\SALMETEROL XINAFOATE
  2. ATORVASTATIN [Concomitant]
     Active Substance: ATORVASTATIN
  3. SULFAMETHOXAZOLE AND TRIMETHOPRIM [Concomitant]
     Active Substance: SULFAMETHOXAZOLE\TRIMETHOPRIM
  4. AMLODIPINE [Concomitant]
     Active Substance: AMLODIPINE BESYLATE
  5. CITRACAL PLUS MAGNESIUM [Concomitant]
     Active Substance: CALCIUM\MAGNESIUM\VITAMIN D\ZINC
  6. BETA CAROTENE [Concomitant]
  7. PROBIOTIC [Concomitant]
     Active Substance: PROBIOTICS NOS
  8. TOLERODINE TARTRATE ER [Concomitant]
  9. VITAMIN D [Concomitant]
     Active Substance: CHOLECALCIFEROL
  10. BENICAR [Concomitant]
     Active Substance: OLMESARTAN MEDOXOMIL
  11. SINGULAIR [Concomitant]
     Active Substance: MONTELUKAST SODIUM
  12. CARBIDOPA-LEVODOPA [Concomitant]
     Active Substance: CARBIDOPA\LEVODOPA
  13. MEGACE [Concomitant]
     Active Substance: MEGESTROL ACETATE
  14. OMEPRAZOLE. [Concomitant]
     Active Substance: OMEPRAZOLE
  15. SPIRIVA [Concomitant]
     Active Substance: TIOTROPIUM BROMIDE MONOHYDRATE
  16. CENTRUM SILVER [Concomitant]
     Active Substance: VITAMINS
  17. OFEV [Suspect]
     Active Substance: NINTEDANIB
     Indication: PULMONARY FIBROSIS
     Route: 048
     Dates: end: 20150204
  18. TRAMADOL [Concomitant]
     Active Substance: TRAMADOL
  19. VITAMIN A [Concomitant]
     Active Substance: VITAMIN A
  20. ECHINACEA [Concomitant]
     Active Substance: ECHINACEA, UNSPECIFIED
  21. PROCHLORPERAZINE. [Concomitant]
     Active Substance: PROCHLORPERAZINE

REACTIONS (5)
  - Hip fracture [None]
  - Decreased appetite [None]
  - Fall [None]
  - Failure to thrive [None]
  - Acute myocardial infarction [None]

NARRATIVE: CASE EVENT DATE: 20150204
